FAERS Safety Report 4551064-6 (Version None)
Quarter: 2005Q1

REPORT INFORMATION
  Report Type: 
  Country: None (occurrence: None)
  Receive Date: 20050106
  Receipt Date: 20041228
  Transmission Date: 20050727
  Serious: Yes (Hospitalization)
  Sender: FDA-Public Use
  Company Number: 2004120492

PATIENT
  Age: 53 Year
  Sex: Female

DRUGS (4)
  1. SULFASALAZINE [Suspect]
     Indication: ILL-DEFINED DISORDER
     Dosage: 3 GRAM
  2. METHOTREXATE [Suspect]
     Indication: RHEUMATOID ARTHRITIS
     Dosage: 25 MG (25 MG, EVERY WEEK)
  3. INFLIXIMAB (INFLIXIMAB) [Suspect]
     Indication: RHEUMATOID ARTHRITIS
     Dosage: 200 MG (200 MG, EVERY 8 WEEKS)
  4. CHLOROQUINE PHOSPHATE (CHOROQOUINE PHOSPHATE) [Concomitant]

REACTIONS (3)
  - C-REACTIVE PROTEIN INCREASED [None]
  - FATIGUE [None]
  - PYREXIA [None]
